FAERS Safety Report 23224063 (Version 1)
Quarter: 2023Q4

REPORT INFORMATION
  Report Type: Spontaneous
  Country: US (occurrence: US)
  Receive Date: 20231124
  Receipt Date: 20231124
  Transmission Date: 20240110
  Serious: Yes (Death)
  Sender: FDA-Public Use
  Company Number: US-NOVITIUMPHARMA-2023USNVP02040

PATIENT
  Age: 5 Year
  Sex: Male

DRUGS (5)
  1. DEXAMETHASONE [Suspect]
     Active Substance: DEXAMETHASONE
     Indication: Burkitt^s lymphoma stage III
  2. GEMCITABINE [Concomitant]
     Active Substance: GEMCITABINE
     Indication: Burkitt^s lymphoma stage III
  3. OXALIPLATIN [Concomitant]
     Active Substance: OXALIPLATIN
     Indication: Burkitt^s lymphoma stage III
  4. SIROLIMUS [Concomitant]
     Active Substance: SIROLIMUS
     Indication: Burkitt^s lymphoma stage III
  5. ETOPOSIDE [Concomitant]
     Active Substance: ETOPOSIDE
     Indication: Burkitt^s lymphoma stage III

REACTIONS (1)
  - Therapy non-responder [Fatal]
